FAERS Safety Report 23491079 (Version 1)
Quarter: 2024Q1

REPORT INFORMATION
  Report Type: Other
  Country: FR (occurrence: FR)
  Receive Date: 20240207
  Receipt Date: 20240207
  Transmission Date: 20240410
  Serious: Yes (Other)
  Sender: FDA-Public Use
  Company Number: FR-DENTSPLY-2024SCDP000029

PATIENT
  Age: 60 Year
  Sex: Female

DRUGS (4)
  1. EPINEPHRINE BITARTRATE\LIDOCAINE HYDROCHLORIDE [Suspect]
     Active Substance: EPINEPHRINE BITARTRATE\LIDOCAINE HYDROCHLORIDE
     Indication: Local anaesthesia
     Dosage: 10 MILLILITER TOTAL (CUMULATIVE DOSE) EPINEPHRINE, XYLOCAINE (LIDOCAINE HYDROCHLORIDE ANHYDROUS 1%:
  2. SODIUM BICARBONATE [Suspect]
     Active Substance: SODIUM BICARBONATE
     Indication: Local anaesthesia
     Dosage: 1 MILLILITER TOTAL (CUMULATIVE DOSE) 0.084 G/ML SODIUM BICARBONATE
  3. PROGESTERONE [Concomitant]
     Active Substance: PROGESTERONE
     Indication: Hormone therapy
     Dosage: UNK
  4. ESTRADIOL [Concomitant]
     Active Substance: ESTRADIOL
     Indication: Hormone therapy
     Dosage: UNK

REACTIONS (1)
  - Skin necrosis [Unknown]
